FAERS Safety Report 13387466 (Version 1)
Quarter: 2017Q1

REPORT INFORMATION
  Report Type: Spontaneous
  Country: US (occurrence: US)
  Receive Date: 20170330
  Receipt Date: 20170330
  Transmission Date: 20170429
  Serious: No
  Sender: FDA-Public Use
  Company Number: US-MYLANLABS-2016M1023781

PATIENT
  Age: 48 Year
  Sex: Female

DRUGS (1)
  1. ESTRADIOL TRANSDERMAL SYSTEM [Suspect]
     Active Substance: ESTRADIOL
     Dosage: 0.0375 MG/ QD, CHANGE OW
     Route: 062
     Dates: start: 2015

REACTIONS (2)
  - Application site urticaria [Unknown]
  - Application site vesicles [Unknown]

NARRATIVE: CASE EVENT DATE: 20160513
